FAERS Safety Report 10097975 (Version 1)
Quarter: 2014Q2

REPORT INFORMATION
  Report Type: Spontaneous
  Country: DE (occurrence: DE)
  Receive Date: 20140423
  Receipt Date: 20140423
  Transmission Date: 20141212
  Serious: Yes (Hospitalization, Other)
  Sender: FDA-Public Use
  Company Number: DE-BRISTOL-MYERS SQUIBB COMPANY-20637559

PATIENT
  Age: 81 Year
  Sex: Male

DRUGS (3)
  1. YERVOY [Suspect]
     Dates: start: 201310, end: 201401
  2. ASTONIN-H [Concomitant]
  3. HYDROCORTISONE [Concomitant]

REACTIONS (5)
  - Pyrexia [Not Recovered/Not Resolved]
  - General physical health deterioration [Not Recovered/Not Resolved]
  - Muscular weakness [Not Recovered/Not Resolved]
  - Dehydration [Not Recovered/Not Resolved]
  - Hormone level abnormal [Not Recovered/Not Resolved]
